FAERS Safety Report 9161692 (Version 5)
Quarter: 2013Q3

REPORT INFORMATION
  Report Type: Report from Study
  Country: JP (occurrence: JP)
  Receive Date: 20130314
  Receipt Date: 20130712
  Transmission Date: 20140515
  Serious: Yes (Hospitalization, Other)
  Sender: FDA-Public Use
  Company Number: JP-009507513-1303JPN005399

PATIENT
  Age: 64 Year
  Sex: Male
  Weight: 65 kg

DRUGS (18)
  1. PEGINTRON [Suspect]
     Indication: CHRONIC HEPATITIS C
     Dosage: 1.5 MICROGRAM PER KILOGRAM, QW, DAILY DOSE UNKNOWN
     Route: 058
     Dates: start: 20120905, end: 20120925
  2. PEGINTRON [Suspect]
     Dosage: 1.3 MICROGRAM PER KILOGRAM, QW, DAILY DOSE UNKNOWN
     Route: 058
     Dates: start: 20121002, end: 20121016
  3. PEGINTRON [Suspect]
     Dosage: 1.2 MICROGRAM PER KILOGRAM, QW, DAILY DOSE UNKNOWN
     Route: 058
     Dates: start: 20121023, end: 20121120
  4. PEGINTRON [Suspect]
     Dosage: 0.8 MICROGRAM PER KILOGRAM, QW, DAILY DOSE UNKNOWN
     Route: 058
     Dates: start: 20121127, end: 20121127
  5. REBETOL [Suspect]
     Indication: CHRONIC HEPATITIS C
     Dosage: 800 MG, QD
     Route: 048
     Dates: start: 20120905, end: 20121002
  6. REBETOL [Suspect]
     Dosage: 400 MG, QD
     Route: 048
     Dates: start: 20121003, end: 20121016
  7. REBETOL [Suspect]
     Dosage: 600 MG, QD
     Route: 048
     Dates: start: 20121017, end: 20121120
  8. REBETOL [Suspect]
     Dosage: 200 MG, QD
     Route: 048
     Dates: start: 20121121, end: 20121127
  9. TELAVIC [Suspect]
     Indication: CHRONIC HEPATITIS C
     Dosage: 2250 MG, QD
     Route: 048
     Dates: start: 20120905, end: 20121120
  10. TELAVIC [Suspect]
     Dosage: 1500 MG, QD
     Route: 048
     Dates: start: 20121121, end: 20121127
  11. FEBURIC [Suspect]
     Indication: PROPHYLAXIS
     Dosage: 20 MG, QD, FORMULATION : POR
     Route: 048
     Dates: start: 20120905, end: 20121031
  12. FEBURIC [Suspect]
     Dosage: 30 MG, QD, FORMULATION : POR
     Route: 048
     Dates: start: 20121101, end: 20121209
  13. FEBURIC [Suspect]
     Dosage: 20 MG, QD, FORMULATION: POR
     Route: 048
     Dates: start: 20121210, end: 20121212
  14. NORVASC OD [Concomitant]
     Indication: HYPERTENSION
     Dosage: 2.5 MG, QD, FORMULATION: POR
     Route: 048
  15. LENDORMIN D [Concomitant]
     Indication: INSOMNIA
     Dosage: 0.25 MG, QD, FORMULATION: POR
     Route: 048
  16. VOLTAREN SR [Concomitant]
     Indication: PROPHYLAXIS
     Dosage: 37.5 MG/DAY, PRN, FORMULATION: POR
     Route: 048
     Dates: start: 20120905
  17. VOLTAREN SR [Concomitant]
     Dosage: 37.5 MG, QD, FORMULATION: POR
     Route: 048
     Dates: end: 20121204
  18. LENDORMIN [Concomitant]
     Indication: INSOMNIA
     Dosage: 0.25 MG, QD, FORMULATION: POR
     Route: 048

REACTIONS (6)
  - Drug reaction with eosinophilia and systemic symptoms [Recovered/Resolved]
  - Haemoglobin decreased [Recovered/Resolved]
  - Malaise [Recovered/Resolved]
  - Pyrexia [Recovered/Resolved]
  - Drug eruption [Recovered/Resolved]
  - Drug reaction with eosinophilia and systemic symptoms [Recovered/Resolved]
